FAERS Safety Report 24638783 (Version 1)
Quarter: 2024Q4

REPORT INFORMATION
  Report Type: Spontaneous
  Country: FR (occurrence: FR)
  Receive Date: 20241119
  Receipt Date: 20241119
  Transmission Date: 20250115
  Serious: Yes (Hospitalization)
  Sender: TEVA
  Company Number: None

PATIENT
  Age: 60 Year
  Sex: Female
  Weight: 60 kg

DRUGS (2)
  1. VERAPAMIL [Suspect]
     Active Substance: VERAPAMIL HYDROCHLORIDE
     Indication: Intentional overdose
     Dosage: TIME INTERVAL: TOTAL: 60 TABS OF VERAPAMIL LP 240 MG ; CHLORHYDRATE DE VERAPAMIL
     Route: 048
     Dates: start: 20240527, end: 20240527
  2. MOLSIDOMINE [Suspect]
     Active Substance: MOLSIDOMINE
     Indication: Intentional overdose
     Dosage: TIME INTERVAL: TOTAL: 30 TABS OF MOLSIDOMINE 2 MG
     Route: 048
     Dates: start: 20240527, end: 20240527

REACTIONS (3)
  - Coma [Recovered/Resolved]
  - Cardiogenic shock [Recovered/Resolved]
  - Poisoning deliberate [Recovered/Resolved]

NARRATIVE: CASE EVENT DATE: 20240527
